FAERS Safety Report 9477348 (Version 1)
Quarter: 2013Q3

REPORT INFORMATION
  Report Type: Report from Study
  Country: US (occurrence: US)
  Receive Date: 20130826
  Receipt Date: 20130826
  Transmission Date: 20140515
  Serious: Yes (Death, Hospitalization, Disabling)
  Sender: FDA-Public Use
  Company Number: US-US-EMD SERONO, INC.-7233245

PATIENT
  Age: 55 Year
  Sex: Male

DRUGS (1)
  1. REBIF [Suspect]
     Indication: MULTIPLE SCLEROSIS
     Route: 058
     Dates: start: 20030917, end: 201304

REACTIONS (6)
  - Colitis ischaemic [Fatal]
  - Renal failure [Fatal]
  - Multiple sclerosis [Fatal]
  - Skin ulcer [Unknown]
  - Faecal incontinence [Unknown]
  - Sensory loss [Not Recovered/Not Resolved]
